FAERS Safety Report 8720741 (Version 3)
Quarter: 2015Q2

REPORT INFORMATION
  Report Type: Report from Study
  Country: US (occurrence: US)
  Receive Date: 20120813
  Receipt Date: 20150401
  Transmission Date: 20150821
  Serious: Yes (Death)
  Sender: FDA-Public Use
  Company Number: US-ROCHE-1100269

PATIENT
  Sex: Female
  Weight: 61 kg

DRUGS (3)
  1. XELODA [Suspect]
     Active Substance: CAPECITABINE
     Indication: BREAST CANCER
     Route: 048
     Dates: start: 20120128, end: 20120704
  2. XELODA [Suspect]
     Active Substance: CAPECITABINE
     Indication: BONE CANCER
     Dosage: 4 TABLETS A DAY FOR 14 DAYS AND THEN OFF FOR 7 DAYS
     Route: 048
  3. XELODA [Suspect]
     Active Substance: CAPECITABINE
     Dosage: 3 TABLETS (500 MG) 2 TIMES PER DAY ALONGWITH 1 TABLET (150 MG) 2 TIMES PER DAY FOR 14 DAYS AND THEN
     Route: 048

REACTIONS (1)
  - Breast cancer metastatic [Fatal]
